FAERS Safety Report 16323651 (Version 1)
Quarter: 2019Q2

REPORT INFORMATION
  Report Type: Spontaneous
  Country: US (occurrence: US)
  Receive Date: 20190517
  Receipt Date: 20190517
  Transmission Date: 20190711
  Serious: Yes (Other)
  Sender: FDA-Public Use
  Company Number: US-009507513-1905USA007061

PATIENT
  Age: 44 Year
  Sex: Female
  Weight: 119 kg

DRUGS (6)
  1. FOLINIC ACID [Suspect]
     Active Substance: LEUCOVORIN
     Indication: PRODUCT USED FOR UNKNOWN INDICATION
     Dosage: X1
     Route: 042
     Dates: start: 20140124, end: 20140124
  2. FLUOROURACIL. [Suspect]
     Active Substance: FLUOROURACIL
     Indication: CHEMOTHERAPY
     Dosage: X1
     Route: 040
     Dates: start: 20140124, end: 20140124
  3. ALOXI [Suspect]
     Active Substance: PALONOSETRON HYDROCHLORIDE
     Indication: NAUSEA
     Dosage: X1 (DOSE REPORTED AS 0.25MG)
     Route: 040
     Dates: start: 20140124, end: 20140124
  4. OXALIPLATIN. [Suspect]
     Active Substance: OXALIPLATIN
     Indication: RECTAL CANCER
     Dosage: X 12 CYCLES
     Route: 042
     Dates: start: 20140124, end: 20140124
  5. PEPCID [Suspect]
     Active Substance: FAMOTIDINE
     Indication: ANTIALLERGIC THERAPY
     Dosage: X1
     Route: 042
     Dates: start: 20140124, end: 20140124
  6. EMEND [Suspect]
     Active Substance: APREPITANT
     Indication: NAUSEA
     Dosage: X1
     Route: 042
     Dates: start: 20140124, end: 20140124

REACTIONS (4)
  - Hypertension [Recovered/Resolved]
  - Chills [Recovered/Resolved]
  - Heart rate increased [Recovered/Resolved]
  - Pyrexia [Recovered/Resolved]

NARRATIVE: CASE EVENT DATE: 20140207
